FAERS Safety Report 23510934 (Version 1)
Quarter: 2024Q1

REPORT INFORMATION
  Report Type: Spontaneous
  Country: US (occurrence: US)
  Receive Date: 20240212
  Receipt Date: 20240212
  Transmission Date: 20240410
  Serious: Yes (Death, Life-Threatening)
  Sender: FDA-Public Use
  Company Number: US-ENDO PHARMACEUTICALS INC-2024-000679

PATIENT
  Age: 3 Year
  Sex: Female

DRUGS (1)
  1. BUPROPION HYDROCHLORIDE [Suspect]
     Active Substance: BUPROPION HYDROCHLORIDE
     Indication: Product used for unknown indication
     Dosage: UNK UNKNOWN, UNKNOWN (ABOUT 60 PILLS)
     Route: 048

REACTIONS (11)
  - Death [Fatal]
  - Apnoea [Unknown]
  - Brain oedema [Unknown]
  - Hypothermia [Unknown]
  - Urine output decreased [Unknown]
  - Ventricular tachycardia [Unknown]
  - Brain injury [Unknown]
  - Accidental overdose [Fatal]
  - Cardiac arrest [Unknown]
  - Hypotension [Unknown]
  - Bradycardia [Unknown]

NARRATIVE: CASE EVENT DATE: 20220101
